FAERS Safety Report 6500678-2 (Version None)
Quarter: 2009Q4

REPORT INFORMATION
  Report Type: 
  Country: None (occurrence: None)
  Receive Date: 20091216
  Receipt Date: 20090107
  Transmission Date: 20100525
  Serious: No
  Sender: FDA-Public Use
  Company Number: A0762668A

PATIENT
  Age: 48 Year
  Sex: Male

DRUGS (1)
  1. COMMIT [Suspect]
     Dates: start: 20090107, end: 20090107

REACTIONS (5)
  - DYSPEPSIA [None]
  - GLOSSODYNIA [None]
  - NAUSEA [None]
  - ORAL DISCOMFORT [None]
  - THROAT IRRITATION [None]
